FAERS Safety Report 4704997-1 (Version None)
Quarter: 2005Q3

REPORT INFORMATION
  Report Type: 
  Country: None (occurrence: None)
  Receive Date: 20050701
  Receipt Date: 20050622
  Transmission Date: 20060218
  Serious: Yes (Hospitalization)
  Sender: FDA-Public Use
  Company Number: US-JNJFOC-20050606321

PATIENT
  Sex: Female
  Weight: 54.43 kg

DRUGS (7)
  1. INFLIXIMAB [Suspect]
     Indication: RHEUMATOID ARTHRITIS
     Route: 042
  2. METHOTREXATE [Concomitant]
  3. TOPROL-XL [Concomitant]
  4. MEDROL [Concomitant]
  5. FOLIC ACID [Concomitant]
  6. ACTONEL [Concomitant]
  7. OSCAL [Concomitant]

REACTIONS (2)
  - PLEURISY [None]
  - SPLENITIS [None]
